FAERS Safety Report 6054638-9 (Version None)
Quarter: 2009Q1

REPORT INFORMATION
  Report Type: 
  Country: None (occurrence: None)
  Receive Date: 20090128
  Receipt Date: 20090116
  Transmission Date: 20090719
  Serious: Yes (Death)
  Sender: FDA-Public Use
  Company Number: US-RANBAXY-2009RR-21003

PATIENT
  Age: 59 Year
  Sex: Female

DRUGS (9)
  1. HYDROCODONE BITARTRATE AND ACETAMINOPHEN [Suspect]
     Indication: DRUG USE FOR UNKNOWN INDICATION
     Dosage: UNK
     Route: 048
  2. RISPERDAL [Concomitant]
  3. TRAZODONE HCL [Concomitant]
  4. CLONAZEPAM [Concomitant]
  5. ATENOLOL [Concomitant]
  6. ZIPRASIDONE [Concomitant]
  7. SERTRALINE [Concomitant]
  8. NALOXONE [Concomitant]
     Dosage: 2 MG, UNK
  9. NALOXONE [Concomitant]
     Dosage: 3.6 UNK, UNK

REACTIONS (4)
  - COAGULOPATHY [None]
  - DRUG TOXICITY [None]
  - HEPATIC FAILURE [None]
  - SEPSIS [None]
